FAERS Safety Report 4665894-3 (Version None)
Quarter: 2005Q2

REPORT INFORMATION
  Report Type: 
  Country: None (occurrence: None)
  Receive Date: 20050517
  Receipt Date: 20050509
  Transmission Date: 20051028
  Serious: Yes (Life-Threatening, Hospitalization)
  Sender: FDA-Public Use
  Company Number: 200510930BWH

PATIENT
  Age: 85 Year
  Sex: Male

DRUGS (8)
  1. AVELOX [Suspect]
     Indication: BRONCHITIS
     Dosage: 400 MG, UNK, ORAL
     Route: 048
  2. AVELOX [Suspect]
     Indication: PNEUMONIA
     Dosage: 400 MG, UNK, ORAL
     Route: 048
  3. LISINOPRIL [Concomitant]
  4. ASPIRIN [Concomitant]
  5. WARFARIN SODIUM [Concomitant]
  6. METOPROLOL [Concomitant]
  7. DILANTIN [Concomitant]
  8. DETROL [Concomitant]

REACTIONS (6)
  - AMNESIA [None]
  - CONTUSION [None]
  - DIZZINESS [None]
  - FALL [None]
  - LOSS OF CONSCIOUSNESS [None]
  - UNEVALUABLE EVENT [None]
